FAERS Safety Report 9984988 (Version 1)
Quarter: 2014Q1

REPORT INFORMATION
  Report Type: Report from Study
  Country: US (occurrence: US)
  Receive Date: 20140307
  Receipt Date: 20140307
  Transmission Date: 20141002
  Serious: No
  Sender: FDA-Public Use
  Company Number: US-ABBVIE-14P-163-1186417-00

PATIENT
  Sex: Female

DRUGS (3)
  1. HUMIRA [Suspect]
     Indication: CROHN^S DISEASE
     Dates: start: 20131030
  2. ASACOL [Concomitant]
     Indication: CROHN^S DISEASE
     Dosage: 1 TABLET IN AM 1 AT NIGHT
  3. ALBUTEROL RESCUE INHALER [Concomitant]
     Indication: ASTHMA

REACTIONS (5)
  - Throat irritation [Recovering/Resolving]
  - Cough [Recovering/Resolving]
  - Increased upper airway secretion [Recovering/Resolving]
  - Rhinorrhoea [Recovering/Resolving]
  - Nasopharyngitis [Recovering/Resolving]
